FAERS Safety Report 24096976 (Version 1)
Quarter: 2024Q3

REPORT INFORMATION
  Report Type: Spontaneous
  Country: US (occurrence: US)
  Receive Date: 20240716
  Receipt Date: 20240716
  Transmission Date: 20241017
  Serious: No
  Sender: GRIFOLS
  Company Number: US-IGSA-BIG0027550

PATIENT
  Age: 55 Year
  Sex: Female

DRUGS (6)
  1. GAMUNEX-C [Suspect]
     Active Substance: HUMAN IMMUNOGLOBULIN G
     Indication: Chronic inflammatory demyelinating polyradiculoneuropathy
     Dosage: 20 GRAM, Q.3WK.
     Route: 042
  2. EXCEDRIN [ACETYLSALICYLIC ACID;CAFFEINE;PARACETAMOL] [Concomitant]
     Indication: Premedication
  3. BENADRYL [Concomitant]
     Active Substance: DIPHENHYDRAMINE HYDROCHLORIDE
     Indication: Premedication
  4. DEXTROSE\WATER [Concomitant]
     Active Substance: DEXTROSE\WATER
     Indication: Premedication
  5. VITAMIN B12 [Concomitant]
     Active Substance: CYANOCOBALAMIN
  6. IRON [Concomitant]
     Active Substance: IRON

REACTIONS (1)
  - Headache [Recovered/Resolved]
